FAERS Safety Report 16786984 (Version 1)
Quarter: 2019Q3

REPORT INFORMATION
  Report Type: Spontaneous
  Country: CA (occurrence: CA)
  Receive Date: 20190909
  Receipt Date: 20190909
  Transmission Date: 20191005
  Serious: Yes (Other)
  Sender: FDA-Public Use
  Company Number: CA-TEVA-2019-CA-1104897

PATIENT
  Age: 39 Year
  Sex: Male

DRUGS (2)
  1. ALPRAZOLAM. [Suspect]
     Active Substance: ALPRAZOLAM
     Indication: PRODUCT USED FOR UNKNOWN INDICATION
     Dosage: 4 MILLIGRAM DAILY;
     Route: 065
  2. ALPRAZOLAM. [Suspect]
     Active Substance: ALPRAZOLAM
     Route: 065

REACTIONS (10)
  - Glossopharyngeal nerve disorder [Recovered/Resolved]
  - Drug withdrawal syndrome [Recovered/Resolved]
  - Hallucinations, mixed [Recovered/Resolved]
  - Motor dysfunction [Recovered/Resolved]
  - Vagus nerve disorder [Recovered/Resolved]
  - Aggression [Recovered/Resolved]
  - Paramnesia [Recovered/Resolved]
  - Cerebellar ataxia [Recovered/Resolved]
  - Hyporeflexia [Recovered/Resolved]
  - Tremor [Recovered/Resolved]
